FAERS Safety Report 10634716 (Version 3)
Quarter: 2014Q4

REPORT INFORMATION
  Report Type: Spontaneous
  Country: FR (occurrence: FR)
  Receive Date: 20141205
  Receipt Date: 20141216
  Transmission Date: 20150529
  Serious: Yes (Other)
  Sender: FDA-Public Use
  Company Number: FR-JNJFOC-20141202389

PATIENT
  Age: 19 Year
  Sex: Male

DRUGS (2)
  1. DISULONE [Suspect]
     Active Substance: DAPSONE
     Indication: PRODUCT USED FOR UNKNOWN INDICATION
     Route: 065
  2. REMICADE [Suspect]
     Active Substance: INFLIXIMAB
     Indication: COLITIS ULCERATIVE
     Route: 042

REACTIONS (4)
  - Enterocolitis haemorrhagic [Unknown]
  - Glomerulonephritis membranoproliferative [Unknown]
  - Drug resistance [Unknown]
  - Renal failure [Unknown]
